FAERS Safety Report 7427079-7 (Version None)
Quarter: 2011Q2

REPORT INFORMATION
  Report Type: 
  Country: None (occurrence: None)
  Receive Date: 20110420
  Receipt Date: 20110413
  Transmission Date: 20111010
  Serious: Yes (Other)
  Sender: FDA-Public Use
  Company Number: PHHY2011JP19770

PATIENT
  Age: 63 Year
  Sex: Male

DRUGS (2)
  1. CYCLOSPORINE [Suspect]
     Indication: CORD BLOOD TRANSPLANT THERAPY
  2. METHOTREXATE [Concomitant]
     Indication: CORD BLOOD TRANSPLANT THERAPY

REACTIONS (4)
  - BONE MARROW DISORDER [None]
  - BLOOD LACTATE DEHYDROGENASE INCREASED [None]
  - BACTERIAL INFECTION [None]
  - CYTOMEGALOVIRUS TEST POSITIVE [None]
